FAERS Safety Report 6238803-3 (Version None)
Quarter: 2009Q2

REPORT INFORMATION
  Report Type: 
  Country: None (occurrence: None)
  Receive Date: 20090622
  Receipt Date: 20090616
  Transmission Date: 20091009
  Serious: Yes (Hospitalization)
  Sender: FDA-Public Use
  Company Number: IT-WATSON-2009-04503

PATIENT
  Age: 42 Year
  Sex: Female

DRUGS (2)
  1. FORTAMET [Suspect]
     Indication: TYPE 2 DIABETES MELLITUS
     Dosage: 1500 MG, DAILY
     Route: 048
  2. ALCOHOL                            /00002101/ [Suspect]
     Indication: ALCOHOL ABUSE
     Dosage: UNK
     Route: 048

REACTIONS (6)
  - COMA [None]
  - HEPATIC FAILURE [None]
  - LACTIC ACIDOSIS [None]
  - RENAL FAILURE [None]
  - RHABDOMYOLYSIS [None]
  - SHOCK [None]
